FAERS Safety Report 9053613 (Version 3)
Quarter: 2013Q3

REPORT INFORMATION
  Report Type: Spontaneous
  Country: GB (occurrence: GB)
  Receive Date: 20130208
  Receipt Date: 20130718
  Transmission Date: 20140515
  Serious: Yes (Death, Other)
  Sender: FDA-Public Use
  Company Number: PHFR2013GB001091

PATIENT
  Age: 59 Year
  Sex: Male

DRUGS (2)
  1. CLOZARIL [Suspect]
     Indication: SCHIZOPHRENIA
     Dosage: UNK
     Route: 048
     Dates: start: 20070328
  2. CLOZARIL [Suspect]
     Dosage: 550 MG, DAILY
     Route: 048
     Dates: start: 20080102, end: 20130522

REACTIONS (5)
  - Neoplasm malignant [Fatal]
  - Haemoglobin decreased [Unknown]
  - Platelet count increased [Not Recovered/Not Resolved]
  - White blood cell count increased [Recovered/Resolved]
  - Neutrophil count increased [Recovered/Resolved]
